FAERS Safety Report 5270356-9 (Version None)
Quarter: 2007Q1

REPORT INFORMATION
  Report Type: 
  Country: None (occurrence: None)
  Receive Date: 20070320
  Receipt Date: 20070309
  Transmission Date: 20070707
  Serious: Yes (Other)
  Sender: FDA-Public Use
  Company Number: DE-PFIZER INC-2007008942

PATIENT
  Sex: Female
  Weight: 69 kg

DRUGS (5)
  1. REVATIO [Suspect]
     Indication: PULMONARY HYPERTENSION
     Route: 048
  2. RAMIPRIL [Suspect]
     Indication: CARDIOMYOPATHY
     Route: 048
  3. ENAHEXAL [Suspect]
  4. LEVOTHYROXINE SODIUM [Concomitant]
     Route: 048
  5. FINLEPSIN [Concomitant]
     Route: 048

REACTIONS (1)
  - ANGIOEDEMA [None]
